FAERS Safety Report 5009209-X (Version None)
Quarter: 2006Q2

REPORT INFORMATION
  Report Type: 
  Country: None (occurrence: None)
  Receive Date: 20060519
  Receipt Date: 20060505
  Transmission Date: 20061013
  Serious: Yes (Hospitalization)
  Sender: FDA-Public Use
  Company Number: 2006RR-02236

PATIENT
  Age: 36 Year
  Sex: Male

DRUGS (6)
  1. FLUOXETINE [Suspect]
     Indication: DEPRESSION
     Dosage: 20 MG, QD, ORAL
     Route: 048
     Dates: start: 20040101, end: 20060401
  2. VITAMIN B COMPLEX CAP [Concomitant]
  3. VITAMIN B COMPLEX CAP [Concomitant]
  4. VITAMIN B COMPLEX CAP [Concomitant]
  5. LANSOPRAZOLE [Concomitant]
  6. LACTULOSE [Concomitant]

REACTIONS (1)
  - GASTROINTESTINAL HAEMORRHAGE [None]
